FAERS Safety Report 8504632-0 (Version None)
Quarter: 2012Q3

REPORT INFORMATION
  Report Type: 
  Country: None (occurrence: None)
  Receive Date: 20120711
  Receipt Date: 20120709
  Transmission Date: 20120928
  Serious: Yes (Death, Life-Threatening, Hospitalization, Other)
  Sender: FDA-Public Use
  Company Number: FR-GILEAD-2012-0051163

PATIENT
  Sex: Female

DRUGS (10)
  1. PROGRAF [Concomitant]
     Indication: RENAL TRANSPLANT
     Dosage: UNK
     Route: 048
  2. PREDNISONE TAB [Concomitant]
     Indication: RENAL TRANSPLANT
     Dosage: 8 MG, UNK
     Route: 048
  3. CELLCEPT                           /01275104/ [Concomitant]
     Indication: RENAL TRANSPLANT
     Dosage: 250 MG, TID
     Route: 048
  4. VIREAD [Suspect]
     Indication: HEPATITIS B
     Dosage: 1 DF, QD
     Route: 048
     Dates: start: 20111212
  5. LASIX [Concomitant]
     Route: 048
  6. DURAGESIC-100 [Concomitant]
     Dosage: 50 ?G, Q3DAYS
     Route: 058
  7. ATORVASTATIN [Concomitant]
     Indication: HYPERCHOLESTEROLAEMIA
     Dosage: 1 DF, QD
     Route: 048
  8. ACTISKENAN [Concomitant]
     Dosage: 5 MG, BID
     Route: 048
  9. BARACLUDE [Concomitant]
     Indication: HEPATITIS B
     Dosage: 1 MG, UNK
     Route: 048
  10. NEURONTIN [Concomitant]
     Dosage: 300 MG, BID

REACTIONS (3)
  - RENAL FAILURE ACUTE [None]
  - NERVOUS SYSTEM DISORDER [None]
  - CLOSTRIDIUM DIFFICILE COLITIS [None]
